FAERS Safety Report 7232413-7 (Version None)
Quarter: 2011Q1

REPORT INFORMATION
  Report Type: 
  Country: None (occurrence: None)
  Receive Date: 20110119
  Receipt Date: 20110113
  Transmission Date: 20110831
  Serious: No
  Sender: FDA-Public Use
  Company Number: US-PFIZER INC-2009234132

PATIENT
  Sex: Female
  Weight: 68 kg

DRUGS (6)
  1. LIPITOR [Suspect]
     Indication: BLOOD CHOLESTEROL INCREASED
     Dosage: 10 MG, 1X/DAY
     Route: 048
  2. PREMARIN [Suspect]
     Dosage: 0.625 MG, UNK
     Dates: start: 20050101, end: 20090401
  3. INDERAL LA [Concomitant]
     Dosage: UNK
  4. DETROL LA [Concomitant]
     Dosage: UNK
  5. SYNTHROID [Concomitant]
     Dosage: UNK
  6. TOPAMAX [Concomitant]
     Dosage: UNK

REACTIONS (5)
  - ARTHRALGIA [None]
  - BURNING SENSATION [None]
  - WEIGHT INCREASED [None]
  - WITHDRAWAL SYNDROME [None]
  - DRY MOUTH [None]
